FAERS Safety Report 18712450 (Version 1)
Quarter: 2021Q1

REPORT INFORMATION
  Report Type: Spontaneous
  Country: GB (occurrence: GB)
  Receive Date: 20210107
  Receipt Date: 20210107
  Transmission Date: 20210419
  Serious: Yes (Disabling)
  Sender: FDA-Public Use
  Company Number: GB-PFIZER INC-2021002243

PATIENT
  Age: 37 Year
  Sex: Female
  Weight: 47 kg

DRUGS (9)
  1. MEBEVERINE HYDROCHLORIDE [Concomitant]
     Active Substance: MEBEVERINE HYDROCHLORIDE
     Dosage: 3 DF, 1X/DAY (TWENTY MINUTE...)
     Dates: start: 20200819, end: 20201104
  2. CETIRIZINE [Concomitant]
     Active Substance: CETIRIZINE HYDROCHLORIDE
     Dosage: 1 DF, 1X/DAY
     Dates: start: 20200819, end: 20201104
  3. SALBUTAMOL [Concomitant]
     Active Substance: ALBUTEROL
     Dosage: 4 DF, 1X/DAY(ONE OR TWO PUFFS)
     Route: 055
     Dates: start: 20200819
  4. PREGABALIN. [Concomitant]
     Active Substance: PREGABALIN
     Dosage: 3 DF, 1X/DAY
     Dates: start: 20201103
  5. DOMPERIDONE [Concomitant]
     Active Substance: DOMPERIDONE
     Dosage: 30 MG, 1X/DAY (UP TO 3 X A DAY BEFORE MEALS FOR A USUAL MAX OF 1 WEEK; MAX 30MG (3 TAB) PER DAY.)
     Dates: start: 20201015, end: 20201022
  6. CLOBETASONE BUTYRATE [Concomitant]
     Active Substance: CLOBETASONE BUTYRATE
     Dosage: 2 UNK, 1X/DAY (TO BE APPLIED TO  THE AFFECTED AREA(S) TWICE A  )
     Dates: start: 20200924, end: 20201008
  7. CLENIL MODULITE [Concomitant]
     Active Substance: BECLOMETHASONE DIPROPIONATE
     Dosage: 4 DF, 1X/DAY
     Route: 055
     Dates: start: 20200819
  8. SODIUM CROMOGLICATE [Concomitant]
     Active Substance: CROMOLYN SODIUM
     Dosage: 8 DROP, 1X/DAY
     Dates: start: 20200819, end: 20201104
  9. GABAPENTIN. [Suspect]
     Active Substance: GABAPENTIN
     Dosage: 100 MG
     Dates: start: 20200924

REACTIONS (1)
  - Urticaria [Recovered/Resolved]

NARRATIVE: CASE EVENT DATE: 20200927
